FAERS Safety Report 12464238 (Version 1)
Quarter: 2016Q2

REPORT INFORMATION
  Report Type: Spontaneous
  Country: GB (occurrence: GB)
  Receive Date: 20160614
  Receipt Date: 20160614
  Transmission Date: 20160815
  Serious: Yes (Other)
  Sender: FDA-Public Use
  Company Number: GB-TEVA-666591ACC

PATIENT
  Age: 41 Year
  Sex: Male
  Weight: 49 kg

DRUGS (14)
  1. METOCLOPRAMIDE. [Concomitant]
     Active Substance: METOCLOPRAMIDE
     Dosage: THREE TIMES A DAY WHEN REQUIRED
     Dates: start: 20160120
  2. HUMULIN I [Concomitant]
     Active Substance: INSULIN HUMAN
     Dosage: USE AS DIRECTED
     Dates: start: 20160523
  3. NOVORAPID [Concomitant]
     Active Substance: INSULIN ASPART
     Dosage: USE AS DIRECTED
     Dates: start: 20160523
  4. IPRATROPIUM BROMIDE. [Concomitant]
     Active Substance: IPRATROPIUM BROMIDE
     Dosage: 3 DOSAGE FORMS DAILY; AS DIRECTED
     Dates: start: 20160204
  5. TOBRAMYCIN. [Suspect]
     Active Substance: TOBRAMYCIN
     Dates: start: 20151218
  6. DOXYCYCLINE. [Concomitant]
     Active Substance: DOXYCYCLINE
     Dosage: TAKE ONE ONCE OR TWICE A DAY AS REQUIRED
     Dates: start: 20160120
  7. PREDNISOLONE. [Concomitant]
     Active Substance: PREDNISOLONE
     Dosage: 1 DOSAGE FORMS DAILY;
     Dates: start: 20160105
  8. VENTOLIN [Concomitant]
     Active Substance: ALBUTEROL SULFATE
     Route: 055
     Dates: start: 20160204
  9. VITAMINS A AND D [Concomitant]
     Active Substance: LANOLIN\PETROLATUM
     Dosage: 2 DOSAGE FORMS DAILY;
     Dates: start: 20160129
  10. DICLOFENAC SODIUM. [Concomitant]
     Active Substance: DICLOFENAC SODIUM
     Dosage: TWICE DAILY WHEN REQUIRED
     Dates: start: 20160204
  11. CARBOCISTEINE [Concomitant]
     Active Substance: CARBOCYSTEINE
     Dosage: 4 DOSAGE FORMS DAILY;
     Dates: start: 20151019
  12. CORSODYL [Concomitant]
     Active Substance: CHLORHEXIDINE GLUCONATE
     Dosage: 2 DOSAGE FORMS DAILY;
     Dates: start: 20160204
  13. FOSTAIR [Concomitant]
     Active Substance: BECLOMETHASONE\FORMOTEROL
     Dosage: 4 DOSAGE FORMS DAILY;
     Dates: start: 20160204
  14. OMEPRAZOLE. [Concomitant]
     Active Substance: OMEPRAZOLE
     Dosage: TAKE ONE UPTO TWICE DAILY AS REQUIRED
     Dates: start: 20160204

REACTIONS (1)
  - Malaise [Recovered/Resolved]

NARRATIVE: CASE EVENT DATE: 20160525
